FAERS Safety Report 16810082 (Version 1)
Quarter: 2019Q3

REPORT INFORMATION
  Report Type: Spontaneous
  Country: US (occurrence: US)
  Receive Date: 20190916
  Receipt Date: 20190916
  Transmission Date: 20191005
  Serious: No
  Sender: FDA-Public Use
  Company Number: US-PFIZER INC-2019394317

PATIENT
  Sex: Female

DRUGS (3)
  1. ITP (ITOPRIDE HYDROCHLORIDE) [Interacting]
     Active Substance: ITOPRIDE HYDROCHLORIDE
     Dosage: UNK
  2. PROMACTA [Interacting]
     Active Substance: ELTROMBOPAG OLAMINE
     Dosage: UNK
  3. CELEBREX [Suspect]
     Active Substance: CELECOXIB
     Dosage: UNK

REACTIONS (2)
  - Drug interaction [Unknown]
  - Pain [Unknown]
